FAERS Safety Report 21612814 (Version 2)
Quarter: 2022Q4

REPORT INFORMATION
  Report Type: Report from Study
  Country: US (occurrence: US)
  Receive Date: 20221118
  Receipt Date: 20221122
  Transmission Date: 20230113
  Serious: Yes (Death, Hospitalization, Other)
  Sender: FDA-Public Use
  Company Number: US-ABBVIE-4204773

PATIENT
  Age: 66 Year
  Sex: Female

DRUGS (1)
  1. VENCLEXTA [Suspect]
     Active Substance: VENETOCLAX
     Indication: Acute myeloid leukaemia
     Dosage: TIME INTERVAL: 0.33333333 DAYS
     Route: 048

REACTIONS (3)
  - Escherichia infection [Fatal]
  - Hospitalisation [Unknown]
  - Stem cell transplant [Fatal]

NARRATIVE: CASE EVENT DATE: 20221117
